FAERS Safety Report 5286780-4 (Version None)
Quarter: 2007Q1

REPORT INFORMATION
  Report Type: 
  Country: None (occurrence: None)
  Receive Date: 20070116
  Receipt Date: 20061114
  Transmission Date: 20070707
  Serious: No
  Sender: FDA-Public Use
  Company Number: 2006SP004056

PATIENT
  Sex: Male

DRUGS (1)
  1. LUNESTA [Suspect]
     Dosage: 1 X ORAL
     Route: 048
     Dates: start: 20061101, end: 20061101

REACTIONS (1)
  - VISUAL ACUITY REDUCED [None]
